FAERS Safety Report 9731667 (Version 2)
Quarter: 2013Q4

REPORT INFORMATION
  Report Type: Report from Study
  Country: JP (occurrence: JP)
  Receive Date: 20131205
  Receipt Date: 20131205
  Transmission Date: 20140711
  Serious: Yes (Hospitalization, Other)
  Sender: FDA-Public Use
  Company Number: JP-ROCHE-1278194

PATIENT
  Age: 45 Year
  Sex: Female
  Weight: 40 kg

DRUGS (11)
  1. BEVACIZUMAB [Suspect]
     Indication: BREAST CANCER
     Route: 041
     Dates: start: 20130808, end: 20130828
  2. PACLITAXEL [Suspect]
     Indication: BREAST CANCER
     Route: 041
     Dates: start: 20130808, end: 20130808
  3. PACLITAXEL [Suspect]
     Indication: BREAST CANCER METASTATIC
     Route: 041
     Dates: start: 20130819, end: 20130819
  4. PACLITAXEL [Suspect]
     Indication: BREAST CANCER METASTATIC
     Route: 041
     Dates: start: 20130828, end: 20130828
  5. ETIZOLAM [Concomitant]
     Indication: ANXIETY
     Route: 048
     Dates: start: 20130301
  6. CYTOTEC [Concomitant]
     Indication: PROPHYLAXIS AGAINST GASTROINTESTINAL ULCER
     Route: 048
     Dates: start: 20121102
  7. RANMARK [Concomitant]
     Indication: BREAST CANCER METASTATIC
     Route: 042
     Dates: start: 20130301
  8. ADEFURONIC [Concomitant]
     Indication: ANALGESIC THERAPY
     Route: 048
     Dates: start: 20130321
  9. FENTOS TAPE [Concomitant]
     Indication: ANALGESIC THERAPY
     Route: 003
     Dates: start: 20130321
  10. FEROTYM [Concomitant]
     Indication: ANAEMIA
     Route: 048
     Dates: start: 20130412
  11. GOSHAJINKIGAN [Concomitant]
     Indication: HYPOAESTHESIA
     Route: 048
     Dates: start: 20130828

REACTIONS (4)
  - Cardiac failure [Not Recovered/Not Resolved]
  - Cardiomyopathy [Not Recovered/Not Resolved]
  - Pulmonary hypertension [Unknown]
  - Hepatic function abnormal [Unknown]
